FAERS Safety Report 8234999-2 (Version None)
Quarter: 2012Q1

REPORT INFORMATION
  Report Type: 
  Country: None (occurrence: None)
  Receive Date: 20120326
  Receipt Date: 20120319
  Transmission Date: 20120608
  Serious: Yes (Hospitalization)
  Sender: FDA-Public Use
  Company Number: US-BAYER-2011-029748

PATIENT
  Age: 32 Year
  Sex: Female
  Weight: 65 kg

DRUGS (4)
  1. PROVERA [Concomitant]
     Dosage: 10 MG, UNK
  2. VITAMINS, OTHER COMBINATIONS [Concomitant]
     Dosage: UNK UNK, QD
     Dates: start: 20060901, end: 20070801
  3. YASMIN [Suspect]
     Indication: CONTRACEPTION
     Dosage: UNK
     Dates: start: 20070501, end: 20070701
  4. VALTREX [Concomitant]
     Dosage: 500 MG, UNK

REACTIONS (2)
  - PULMONARY EMBOLISM [None]
  - CHEST PAIN [None]
